FAERS Safety Report 5975720-8 (Version None)
Quarter: 2008Q4

REPORT INFORMATION
  Report Type: 
  Country: None (occurrence: None)
  Receive Date: 20081202
  Receipt Date: 20081121
  Transmission Date: 20090506
  Serious: Yes (Hospitalization, Other)
  Sender: FDA-Public Use
  Company Number: PHHY2008GB17360

PATIENT
  Sex: Female

DRUGS (6)
  1. FEMARA [Suspect]
     Indication: BREAST CANCER
     Dosage: 2.5 MG, QD
     Route: 048
     Dates: start: 20070501
  2. DICLOFENAC SODIUM [Concomitant]
     Indication: PAIN
     Dosage: 50 MG, BID
     Route: 048
  3. SIMVASTATIN [Concomitant]
     Indication: BLOOD CHOLESTEROL INCREASED
     Dosage: 40 MG DAILY
     Route: 048
  4. LANSOPRAZOLE [Concomitant]
     Indication: DYSPEPSIA
     Dosage: 30 MG DAILY
     Route: 048
  5. BISOPROLOL FUMARATE [Concomitant]
     Dosage: 1.25MG DAILY
  6. AMIODARONE HCL [Concomitant]
     Route: 042

REACTIONS (14)
  - ARRHYTHMIA [None]
  - DISORIENTATION [None]
  - DIZZINESS [None]
  - ELECTROCARDIOGRAM ST SEGMENT DEPRESSION [None]
  - HEADACHE [None]
  - HEART RATE IRREGULAR [None]
  - LABORATORY TEST ABNORMAL [None]
  - LOSS OF CONSCIOUSNESS [None]
  - METABOLIC DISORDER [None]
  - MIGRAINE [None]
  - MITRAL VALVE INCOMPETENCE [None]
  - TACHYCARDIA [None]
  - TORSADE DE POINTES [None]
  - VENTRICULAR TACHYCARDIA [None]
